FAERS Safety Report 4615443-0 (Version None)
Quarter: 2005Q1

REPORT INFORMATION
  Report Type: 
  Country: None (occurrence: None)
  Receive Date: 20050317
  Receipt Date: 20050304
  Transmission Date: 20050727
  Serious: Yes (Other)
  Sender: FDA-Public Use
  Company Number: 2005041467

PATIENT
  Age: 80 Year
  Sex: Female
  Weight: 54 kg

DRUGS (5)
  1. ATORVASTATIN (ATORVASTATIN) [Suspect]
     Indication: HYPERCHOLESTEROLAEMIA
     Dosage: ORAL
     Route: 048
     Dates: start: 20040621, end: 20041222
  2. PERINDORPIL (PERINDOPRIL) [Concomitant]
  3. ASPIRIN [Concomitant]
  4. ACETAMINOPHEN [Concomitant]
  5. LORAZEPAM [Concomitant]

REACTIONS (2)
  - CHOLELITHIASIS [None]
  - CHOLESTASIS [None]
